FAERS Safety Report 5350551-0 (Version None)
Quarter: 2007Q2

REPORT INFORMATION
  Report Type: 
  Country: None (occurrence: None)
  Receive Date: 20070606
  Receipt Date: 20070521
  Transmission Date: 20071010
  Serious: Yes (Other)
  Sender: FDA-Public Use
  Company Number: L07-USA-02442-01

PATIENT
  Age: 63 Year
  Sex: Female

DRUGS (5)
  1. MEMANTINE HCL [Suspect]
     Indication: DEMENTIA ALZHEIMER'S TYPE
  2. MEPERIDINE HCL [Suspect]
     Indication: COLONOSCOPY
     Dosage: 50 MG ONCE; IV
     Route: 042
  3. GALANTAMINE HYDROBROMIDE [Concomitant]
  4. LEVOTHYROXINE SODIUM [Concomitant]
  5. MULTI-VITAMIN [Concomitant]

REACTIONS (11)
  - BLOOD CHLORIDE INCREASED [None]
  - BUNDLE BRANCH BLOCK RIGHT [None]
  - CARBON DIOXIDE DECREASED [None]
  - CEREBRAL ATROPHY [None]
  - COLORECTAL CANCER [None]
  - DEMYELINATION [None]
  - DISEASE RECURRENCE [None]
  - DRUG INTERACTION [None]
  - GASTROINTESTINAL DISORDER [None]
  - GRAND MAL CONVULSION [None]
  - SINUS BRADYCARDIA [None]
